FAERS Safety Report 16869500 (Version 1)
Quarter: 2019Q3

REPORT INFORMATION
  Report Type: Spontaneous
  Country: US (occurrence: US)
  Receive Date: 20190930
  Receipt Date: 20190930
  Transmission Date: 20191005
  Serious: No
  Sender: FDA-Public Use
  Company Number: US-BAYER-2019-170550

PATIENT
  Age: 64 Year
  Sex: Male

DRUGS (2)
  1. STIVARGA [Suspect]
     Active Substance: REGORAFENIB
     Indication: HEPATOCELLULAR CARCINOMA
     Dosage: DAILY DOSE 80 MG, FOR 21 DAYS ON AND 7 DAYS OFF
     Dates: start: 20190129
  2. NEXAVAR [Suspect]
     Active Substance: SORAFENIB
     Dosage: UNK
     Dates: end: 20190916

REACTIONS (6)
  - Testicular oedema [Recovered/Resolved]
  - Decreased appetite [Recovered/Resolved]
  - Respiratory disorder [Recovered/Resolved]
  - Off label use [None]
  - Abdominal pain upper [Recovered/Resolved]
  - Oedema peripheral [Recovered/Resolved]
